FAERS Safety Report 23987213 (Version 1)
Quarter: 2024Q2

REPORT INFORMATION
  Report Type: Spontaneous
  Country: US (occurrence: US)
  Receive Date: 20240618
  Receipt Date: 20240618
  Transmission Date: 20240716
  Serious: Yes (Death, Life-Threatening, Other)
  Sender: FDA-Public Use
  Company Number: US-PFIZER INC-PV202400079108

PATIENT
  Age: 83 Year
  Sex: Female

DRUGS (6)
  1. SOLU-MEDROL [Suspect]
     Active Substance: METHYLPREDNISOLONE SODIUM SUCCINATE
     Indication: Interstitial lung disease
     Dosage: UNK
  2. SOLU-MEDROL [Suspect]
     Active Substance: METHYLPREDNISOLONE SODIUM SUCCINATE
     Indication: Silicosis
  3. IPRATROPIUM [Suspect]
     Active Substance: IPRATROPIUM
     Indication: Interstitial lung disease
     Dosage: UNK
  4. IPRATROPIUM [Suspect]
     Active Substance: IPRATROPIUM
     Indication: Silicosis
  5. ALBUTEROL [Suspect]
     Active Substance: ALBUTEROL
     Indication: Interstitial lung disease
     Dosage: UNK
  6. ALBUTEROL [Suspect]
     Active Substance: ALBUTEROL
     Indication: Silicosis

REACTIONS (1)
  - Drug ineffective [Fatal]
